FAERS Safety Report 7000234-6 (Version None)
Quarter: 2010Q3

REPORT INFORMATION
  Report Type: 
  Country: None (occurrence: None)
  Receive Date: 20100920
  Receipt Date: 20070725
  Transmission Date: 20110219
  Serious: Yes (Other)
  Sender: FDA-Public Use
  Company Number: US-ASTRAZENECA-2006UW08993

PATIENT
  Age: 9815 Day
  Sex: Female

DRUGS (30)
  1. SEROQUEL [Suspect]
     Indication: BIPOLAR DISORDER
     Route: 048
     Dates: start: 20020501, end: 20051201
  2. SEROQUEL [Suspect]
     Indication: DEPRESSION
     Route: 048
     Dates: start: 20020501, end: 20051201
  3. SEROQUEL [Suspect]
     Indication: ANXIETY
     Route: 048
     Dates: start: 20020501, end: 20051201
  4. SEROQUEL [Suspect]
     Indication: PSYCHOTIC DISORDER
     Route: 048
     Dates: start: 20020501, end: 20051201
  5. SEROQUEL [Suspect]
     Dosage: 25MG TO 100MG
     Route: 048
     Dates: start: 20020503
  6. SEROQUEL [Suspect]
     Dosage: 25MG TO 100MG
     Route: 048
     Dates: start: 20020503
  7. SEROQUEL [Suspect]
     Dosage: 25MG TO 100MG
     Route: 048
     Dates: start: 20020503
  8. SEROQUEL [Suspect]
     Dosage: 25MG TO 100MG
     Route: 048
     Dates: start: 20020503
  9. RISPERDAL [Suspect]
     Indication: BIPOLAR DISORDER
     Dates: start: 20000701, end: 20020501
  10. RISPERDAL [Suspect]
     Indication: DEPRESSION
     Dates: start: 20000701, end: 20020501
  11. RISPERDAL [Suspect]
     Indication: ANXIETY
     Dates: start: 20000701, end: 20020501
  12. RISPERDAL [Suspect]
     Dosage: STRENGTH-1MG TO 3MG
     Dates: start: 20000707
  13. RISPERDAL [Suspect]
     Dosage: STRENGTH-1MG TO 3MG
     Dates: start: 20000707
  14. RISPERDAL [Suspect]
     Dosage: STRENGTH-1MG TO 3MG
     Dates: start: 20000707
  15. ZYPREXA [Suspect]
     Indication: BIPOLAR DISORDER
     Dates: start: 20000101, end: 20000501
  16. ZYPREXA [Suspect]
     Indication: DEPRESSION
     Dates: start: 20000101, end: 20000501
  17. ZYPREXA [Suspect]
     Indication: ANXIETY
     Dates: start: 20000101, end: 20000501
  18. ZYPREXA [Suspect]
     Route: 048
     Dates: start: 20000506
  19. ZYPREXA [Suspect]
     Route: 048
     Dates: start: 20000506
  20. ZYPREXA [Suspect]
     Route: 048
     Dates: start: 20000506
  21. DEPAKOTE ER [Concomitant]
     Dates: start: 20010324
  22. BENZTROPINE MESYLATE [Concomitant]
     Dates: start: 20010121
  23. WELLBUTRIN SR [Concomitant]
     Dates: start: 20010205
  24. TOPAMAX [Concomitant]
     Dosage: 25MG, ONE TAB IN MORNING AND TWO TABS AT BEDTIME
     Dates: start: 20021102
  25. CLARITIN [Concomitant]
     Dates: start: 20021108
  26. DIOVAN [Concomitant]
     Indication: BLOOD PRESSURE
     Dates: start: 20021227
  27. WELCHOL [Concomitant]
     Dosage: 625MG, TWO TABS THREE TIMES A DAY
     Dates: start: 20030110
  28. LIPITOR [Concomitant]
     Indication: BLOOD CHOLESTEROL
     Dates: start: 20050316
  29. AVAPRO [Concomitant]
     Indication: BLOOD PRESSURE
     Dates: start: 20050421
  30. PAXIL [Concomitant]
     Route: 048
     Dates: start: 20030915

REACTIONS (4)
  - DIABETES MELLITUS [None]
  - DIABETES MELLITUS INADEQUATE CONTROL [None]
  - HYPERGLYCAEMIA [None]
  - TYPE 2 DIABETES MELLITUS [None]
